FAERS Safety Report 5889619-9 (Version None)
Quarter: 2008Q3

REPORT INFORMATION
  Report Type: 
  Country: None (occurrence: None)
  Receive Date: 20080919
  Receipt Date: 20080910
  Transmission Date: 20090109
  Serious: Yes (Hospitalization)
  Sender: FDA-Public Use
  Company Number: B0532993A

PATIENT
  Age: 56 Year
  Sex: Female

DRUGS (5)
  1. ZOPHREN [Suspect]
     Indication: PREMEDICATION
     Dosage: 8MG PER DAY
     Route: 042
     Dates: start: 20080715, end: 20080715
  2. AVASTIN [Suspect]
     Dosage: 630MG PER DAY
     Route: 042
     Dates: start: 20080715, end: 20080715
  3. CARBOPLATIN [Suspect]
     Dosage: 340MG PER DAY
     Route: 042
     Dates: start: 20080715
  4. PLITICAN [Suspect]
     Indication: PREMEDICATION
     Dosage: 50MG PER DAY
     Route: 042
     Dates: start: 20080715, end: 20080715
  5. SOLU-MEDROL [Concomitant]
     Indication: PREMEDICATION
     Dosage: 60MG PER DAY
     Route: 042
     Dates: start: 20080715, end: 20080715

REACTIONS (6)
  - ERYTHEMA [None]
  - FEELING HOT [None]
  - HYPERSENSITIVITY [None]
  - NAUSEA [None]
  - RASH [None]
  - VOMITING [None]
